FAERS Safety Report 4905827-5 (Version None)
Quarter: 2006Q1

REPORT INFORMATION
  Report Type: 
  Country: None (occurrence: None)
  Receive Date: 20060203
  Receipt Date: 20060118
  Transmission Date: 20060701
  Serious: Yes (Hospitalization)
  Sender: FDA-Public Use
  Company Number: 2005BI021024

PATIENT
  Age: 79 Year
  Sex: Male
  Weight: 67.1324 kg

DRUGS (3)
  1. ZEVALIN [Suspect]
     Indication: NON-HODGKIN'S LYMPHOMA
     Dosage: X1, IV
     Route: 042
     Dates: start: 20050801, end: 20050801
  2. ZEVALIN [Suspect]
     Indication: NON-HODGKIN'S LYMPHOMA
     Dosage: 0.4 MCI/KG;X1;IV
     Route: 042
     Dates: start: 20050823, end: 20050823
  3. RITUXIMAB [Concomitant]

REACTIONS (6)
  - DISEASE PROGRESSION [None]
  - HEADACHE [None]
  - HYPOAESTHESIA [None]
  - NON-HODGKIN'S LYMPHOMA [None]
  - OEDEMA [None]
  - SALIVARY GLAND DISORDER [None]
